FAERS Safety Report 8005487-3 (Version None)
Quarter: 2011Q4

REPORT INFORMATION
  Report Type: 
  Country: None (occurrence: None)
  Receive Date: 20111223
  Receipt Date: 20111221
  Transmission Date: 20120403
  Serious: Yes (Life-Threatening, Other)
  Sender: FDA-Public Use
  Company Number: PHHY2011TR71633

PATIENT
  Sex: Female

DRUGS (1)
  1. AFINITOR [Suspect]
     Indication: ANGIOMYOLIPOMA
     Dosage: 10 MG FOR 15 DAYS
     Route: 048

REACTIONS (1)
  - INTESTINAL ISCHAEMIA [None]
